FAERS Safety Report 16859270 (Version 4)
Quarter: 2020Q2

REPORT INFORMATION
  Report Type: Report from Study
  Country: BR (occurrence: BR)
  Receive Date: 20190926
  Receipt Date: 20200504
  Transmission Date: 20200713
  Serious: Yes (Other)
  Sender: FDA-Public Use
  Company Number: BR-BIOGEN-2019BI00787355

PATIENT
  Age: 77 Year
  Sex: Female

DRUGS (5)
  1. ESOMEPRAZOLE. [Concomitant]
     Active Substance: ESOMEPRAZOLE MAGNESIUM
     Indication: PRODUCT USED FOR UNKNOWN INDICATION
     Route: 065
  2. ZARMINE [Concomitant]
     Indication: PRODUCT USED FOR UNKNOWN INDICATION
     Route: 065
  3. PREBICTAL [Concomitant]
     Active Substance: PREGABALIN
     Indication: PRODUCT USED FOR UNKNOWN INDICATION
     Route: 065
  4. AVONEX PEN [Suspect]
     Active Substance: INTERFERON BETA-1A
     Indication: MULTIPLE SCLEROSIS
     Route: 030
     Dates: start: 2004
  5. CYMBALTA [Concomitant]
     Active Substance: DULOXETINE HYDROCHLORIDE
     Indication: PRODUCT USED FOR UNKNOWN INDICATION
     Route: 065

REACTIONS (16)
  - Head injury [Recovered/Resolved]
  - Decreased immune responsiveness [Unknown]
  - Urinary tract infection [Not Recovered/Not Resolved]
  - Fall [Recovered/Resolved]
  - Gait disturbance [Unknown]
  - Blood pressure fluctuation [Unknown]
  - Pain [Unknown]
  - Cerebral thrombosis [Recovered/Resolved]
  - Post procedural complication [Not Recovered/Not Resolved]
  - Paraplegia [Not Recovered/Not Resolved]
  - Pyrexia [Unknown]
  - Bone neoplasm [Unknown]
  - Confusional state [Unknown]
  - Pain in extremity [Not Recovered/Not Resolved]
  - Tremor [Unknown]
  - Influenza [Not Recovered/Not Resolved]

NARRATIVE: CASE EVENT DATE: 201808
